FAERS Safety Report 5976635-1 (Version None)
Quarter: 2008Q4

REPORT INFORMATION
  Report Type: 
  Country: None (occurrence: None)
  Receive Date: 20081201
  Receipt Date: 20081201
  Transmission Date: 20090506
  Serious: Yes (Life-Threatening, Other)
  Sender: FDA-Public Use
  Company Number: None

PATIENT
  Age: 36 Year
  Sex: Male

DRUGS (1)
  1. BUPROPION HCL [Suspect]
     Indication: SMOKING CESSATION THERAPY
     Dosage: 100 MG TID PO
     Route: 048
     Dates: start: 20080912, end: 20081021

REACTIONS (3)
  - AMNESIA [None]
  - CONFUSIONAL STATE [None]
  - SYNCOPE [None]
